FAERS Safety Report 6309643-1 (Version None)
Quarter: 2009Q3

REPORT INFORMATION
  Report Type: 
  Country: None (occurrence: None)
  Receive Date: 20090814
  Receipt Date: 20090811
  Transmission Date: 20100115
  Serious: Yes (Hospitalization)
  Sender: FDA-Public Use
  Company Number: IT-BRISTOL-MYERS SQUIBB COMPANY-14723555

PATIENT
  Age: 61 Year
  Sex: Female
  Weight: 67 kg

DRUGS (8)
  1. CISPLATIN [Suspect]
     Indication: NON-SMALL CELL LUNG CANCER METASTATIC
     Route: 042
     Dates: end: 20090618
  2. ALIMTA [Suspect]
     Indication: NON-SMALL CELL LUNG CANCER METASTATIC
     Dosage: REGIMEN1: 500MG/M2 REGIMEN2: THERAPY FROM 29MAY09, MAINTENANCE PHASE
     Route: 042
     Dates: end: 20090618
  3. FOLIC ACID [Concomitant]
     Dates: start: 20090216
  4. VITAMIN B-12 [Concomitant]
     Dates: start: 20090216
  5. DEXAMETHASONE [Concomitant]
     Dates: start: 20090216
  6. EPARINA [Concomitant]
     Dates: start: 20090401
  7. FERROUS SULFATE TAB [Concomitant]
     Dates: start: 20090529
  8. DARBEPOETIN ALFA [Concomitant]
     Dates: start: 20090529

REACTIONS (2)
  - CHEST PAIN [None]
  - DYSPNOEA [None]
